FAERS Safety Report 24773132 (Version 1)
Quarter: 2024Q4

REPORT INFORMATION
  Report Type: Report from Study
  Country: US (occurrence: US)
  Receive Date: 20241225
  Receipt Date: 20241225
  Transmission Date: 20250115
  Serious: No
  Sender: UCB
  Company Number: US-UCBSA-2024055802

PATIENT
  Sex: Female

DRUGS (1)
  1. ROTIGOTINE [Suspect]
     Active Substance: ROTIGOTINE
     Indication: Product used for unknown indication
     Dosage: 2 MILLIGRAM/24 HOUR

REACTIONS (2)
  - Drug ineffective [Unknown]
  - Product adhesion issue [Unknown]
